FAERS Safety Report 6311854-6 (Version None)
Quarter: 2009Q3

REPORT INFORMATION
  Report Type: 
  Country: None (occurrence: None)
  Receive Date: 20090817
  Receipt Date: 20090810
  Transmission Date: 20100115
  Serious: Yes (Other)
  Sender: FDA-Public Use
  Company Number: FR-BRISTOL-MYERS SQUIBB COMPANY-14734669

PATIENT
  Age: 8 Year
  Sex: Male

DRUGS (3)
  1. ETOPOSIDE [Suspect]
     Indication: METASTASES TO MENINGES
     Dosage: HELD FOR 2 WEEKS AND RECOMMENCED
     Route: 048
  2. CYCLOPHOSPHAMIDE [Suspect]
     Indication: METASTASES TO MENINGES
     Dosage: HELD FOR 2 WEEKS AND RECOMMENCED
     Route: 048
  3. CELECOXIB [Suspect]
     Indication: METASTASES TO MENINGES
     Dosage: HELD FOR 2 WEEKS AND RECOMMENCED

REACTIONS (2)
  - SUBDURAL HAEMATOMA [None]
  - THROMBOCYTOPENIA [None]
